FAERS Safety Report 9176995 (Version 2)
Quarter: 2013Q1

REPORT INFORMATION
  Report Type: Report from Study
  Country: DE (occurrence: DE)
  Receive Date: 20130321
  Receipt Date: 20130327
  Transmission Date: 20140127
  Serious: Yes (Hospitalization)
  Sender: FDA-Public Use
  Company Number: DE-UCBSA-005898

PATIENT
  Age: 80 Year
  Sex: Female
  Weight: 45 kg

DRUGS (37)
  1. NEUPRO [Suspect]
     Indication: PARKINSON^S DISEASE
     Route: 062
     Dates: start: 20091007, end: 20091102
  2. NEUPRO [Suspect]
     Indication: PARKINSON^S DISEASE
     Route: 062
     Dates: start: 20091103, end: 20100401
  3. NEUPRO [Suspect]
     Indication: PARKINSON^S DISEASE
     Route: 062
     Dates: start: 20100402, end: 20100407
  4. NEUPRO [Suspect]
     Indication: PARKINSON^S DISEASE
     Route: 062
     Dates: start: 20100408, end: 20100714
  5. NEUPRO [Suspect]
     Indication: PARKINSON^S DISEASE
     Route: 062
     Dates: start: 201007, end: 20100831
  6. NEUPRO [Suspect]
     Indication: PARKINSON^S DISEASE
     Route: 062
     Dates: start: 20100715, end: 201007
  7. NEUPRO [Suspect]
     Indication: PARKINSON^S DISEASE
     Route: 062
     Dates: start: 20100901, end: 20110210
  8. LEVODOPA/CARBIDOPA [Suspect]
     Indication: PARKINSON^S DISEASE
     Dosage: SINGLE DOSE: 100/25 MG, ONCE DAILY
     Dates: end: 200905
  9. LEVODOPA/CARBIDOPA [Suspect]
     Indication: PARKINSON^S DISEASE
     Dosage: SINGLE DOSE: 200/50 MG
     Dates: start: 20090828, end: 20090915
  10. LEVODOPA/CARBIDOPA [Suspect]
     Indication: PARKINSON^S DISEASE
     Dosage: SINGLE DOSE: 200/50 MG, TWICE DAILY
     Dates: start: 20090916, end: 201001
  11. LEVODOPA/CARBIDOPA [Suspect]
     Indication: PARKINSON^S DISEASE
     Dosage: SINGLE DOSE: 200/50 MG, ONCE DAILY
     Dates: start: 201001, end: 20110210
  12. LEVODOPA COMP C [Suspect]
     Indication: PARKINSON^S DISEASE
     Dosage: 100/25 MG: 1 1/2-1/2-3/4-1/2
     Dates: start: 200811, end: 20090816
  13. LEVODOPA COMP C [Suspect]
     Indication: PARKINSON^S DISEASE
     Dosage: 100/25 MG: 1 1/2-3/4-3/4-3/4
     Dates: start: 20090817, end: 20090827
  14. LEVODOPA COMP C [Suspect]
     Indication: PARKINSON^S DISEASE
     Dosage: 100/25 MG: 1 1/4- 1 1/4- 1 1/4- 1 1/4
     Dates: start: 20090902, end: 20091110
  15. LEVODOPA COMP C [Suspect]
     Indication: PARKINSON^S DISEASE
     Dosage: 100/25 MG FOUR TIMES DAILY
     Dates: start: 20091111, end: 20100519
  16. LEVODOPA COMP C [Suspect]
     Indication: PARKINSON^S DISEASE
     Dosage: 50/12.5MG
     Dates: start: 20100520, end: 20100602
  17. LEVODOPA COMP C [Suspect]
     Indication: PARKINSON^S DISEASE
     Dosage: 50/12.5 MG
     Dates: start: 20100603, end: 20100714
  18. LEVODOPA COMP C [Suspect]
     Indication: PARKINSON^S DISEASE
     Dosage: 50/12.5 MG
     Dates: start: 201007, end: 201007
  19. LEVODOPA COMP C [Suspect]
     Indication: PARKINSON^S DISEASE
     Dosage: 50/12.5
     Dates: start: 201007, end: 201007
  20. LEVODOPA COMP C [Suspect]
     Indication: PARKINSON^S DISEASE
     Dosage: SINGLE DOSE: 50/12.5
     Dates: start: 20100715, end: 201007
  21. LEVODOPA COMP C [Suspect]
     Indication: PARKINSON^S DISEASE
     Dosage: 50/12.5 MG
     Dates: start: 20100908, end: 20110210
  22. PREDNISOLON [Concomitant]
     Indication: RHEUMATOID ARTHRITIS
     Dates: end: 20110210
  23. TRAMAL [Concomitant]
     Indication: PAIN
     Dates: start: 201001, end: 201001
  24. TORASEMID [Concomitant]
     Indication: HYPERTENSION
     Dates: end: 2010
  25. RAMIPRIL [Concomitant]
     Indication: HYPERTENSION
     Dosage: DOSE: 5 MG, OTHER 1/2 DAILY
     Dates: end: 20100728
  26. CARMEN [Concomitant]
     Indication: HYPERTENSION
     Dates: end: 20110210
  27. AMLODIPIN [Concomitant]
     Indication: HYPERTENSION
     Dates: end: 20100923
  28. AMLODIPIN [Concomitant]
     Indication: HYPERTENSION
     Dates: start: 201009, end: 201102
  29. NEBIVOLOL [Concomitant]
     Indication: HYPERTENSION
     Dates: end: 20110210
  30. PANTOZOL [Concomitant]
     Indication: PROPHYLAXIS
     Dates: end: 20110210
  31. PANTOZOL [Concomitant]
     Indication: PROPHYLAXIS
     Dates: end: 2010
  32. ASS [Concomitant]
     Indication: CARDIOVASCULAR EVENT PROPHYLAXIS
     Dates: end: 20110210
  33. NOVAMINSULFON [Concomitant]
     Indication: PAIN
     Dosage: 20 OTHER DROPS, OTHER AS NEEDED UP TO 4 IN A DAY
     Dates: start: 2010, end: 20110210
  34. NOVAMINSULFON [Concomitant]
     Indication: PAIN
     Dates: start: 201002, end: 2010
  35. FORMOTEROL [Concomitant]
     Indication: CHRONIC OBSTRUCTIVE PULMONARY DISEASE
     Dosage: UNKNOWN DOSE, TWICE DAILY
     Dates: start: 201001, end: 201001
  36. SEROQUEL [Concomitant]
     Indication: DELIRIUM
     Dates: start: 201001, end: 20100505
  37. MOVICOL [Concomitant]
     Indication: CONSTIPATION
     Dosage: 1 OTHER BAG, AS REQUIRED
     Dates: start: 201001, end: 201001

REACTIONS (3)
  - Delirium [Recovered/Resolved]
  - Chronic obstructive pulmonary disease [Recovered/Resolved]
  - Chest pain [Recovered/Resolved]
